FAERS Safety Report 8429977-4 (Version None)
Quarter: 2012Q2

REPORT INFORMATION
  Report Type: 
  Country: None (occurrence: None)
  Receive Date: 20120612
  Receipt Date: 20120605
  Transmission Date: 20120825
  Serious: Yes (Hospitalization, Other)
  Sender: FDA-Public Use
  Company Number: AU-ROCHE-1043605

PATIENT
  Sex: Male
  Weight: 66.5 kg

DRUGS (1)
  1. VEMURAFENIB [Suspect]
     Indication: MALIGNANT MELANOMA
     Dosage: DOSE : 960
     Route: 048
     Dates: start: 20111129

REACTIONS (8)
  - MELANOCYTIC NAEVUS [None]
  - DISEASE PROGRESSION [None]
  - PAIN IN EXTREMITY [None]
  - FATIGUE [None]
  - HYPERKERATOSIS [None]
  - ENTEROCOLITIS BACTERIAL [None]
  - ALOPECIA [None]
  - SUNBURN [None]
